FAERS Safety Report 4563293-6 (Version None)
Quarter: 2005Q1

REPORT INFORMATION
  Report Type: 
  Country: None (occurrence: None)
  Receive Date: 20050128
  Receipt Date: 20031204
  Transmission Date: 20050727
  Serious: No
  Sender: FDA-Public Use
  Company Number: US-GLAXOSMITHKLINE-A0442009A

PATIENT

DRUGS (1)
  1. WELLBUTRIN [Suspect]
     Indication: DEPRESSION

REACTIONS (1)
  - DEPRESSION [None]
